FAERS Safety Report 9274428 (Version 1)
Quarter: 2013Q2

REPORT INFORMATION
  Report Type: Report from Study
  Country: US (occurrence: US)
  Receive Date: 20130506
  Receipt Date: 20130506
  Transmission Date: 20140414
  Serious: No
  Sender: FDA-Public Use
  Company Number: PHEH2013US005533

PATIENT
  Age: 61 Year
  Sex: Male
  Weight: 121.1 kg

DRUGS (22)
  1. GLEEVEC [Suspect]
     Indication: CHRONIC MYELOID LEUKAEMIA
     Dosage: 300 MG,DAILY
     Route: 048
     Dates: start: 201201
  2. GLEEVEC [Suspect]
     Dosage: 100 MG, UNK
  3. GLEEVEC [Suspect]
     Dosage: 400 UKN, QD
     Route: 048
     Dates: start: 20120130, end: 20120703
  4. TASIGNA [Suspect]
     Indication: CHRONIC MYELOID LEUKAEMIA
     Dosage: 300 UKN, BID
     Route: 048
     Dates: start: 20111207, end: 20120125
  5. TASIGNA [Suspect]
     Dosage: 300 UKN, BID
     Route: 048
     Dates: start: 20120703
  6. ALLOPURINOL [Concomitant]
     Indication: BLOOD URIC ACID
     Dosage: 300 UKN, QD
     Route: 048
  7. ALLOPURINOL [Concomitant]
     Indication: GOUT
     Dosage: 20 UKN, UNK
     Route: 048
  8. METFORMIN [Concomitant]
     Dosage: UNK UKN, UNK
  9. TRICOR [Concomitant]
     Dosage: UNK
  10. DICYCLOMINE [Concomitant]
     Dosage: UNK UKN, UNK
  11. ALFUZOSIN [Concomitant]
     Dosage: UNK UKN, UNK
  12. OMEPRAZOLE [Concomitant]
     Indication: GASTROOESOPHAGEAL REFLUX DISEASE
     Dosage: 20 UKN, QD
     Route: 048
  13. LEXAPRO [Concomitant]
     Dosage: UNK
  14. VITAMIN D [Concomitant]
     Dosage: UNK
  15. FLUOCINONIDE [Concomitant]
     Dosage: 0.05 UNK, UNK
  16. ASPIRE [Concomitant]
     Dosage: UNK UKN, UNK
  17. FIBRE, DIETARY [Concomitant]
     Dosage: UNK
  18. GEMFIBROZIL [Concomitant]
     Indication: BLOOD CHOLESTEROL
     Dosage: 300 UKN, BID
     Route: 048
  19. GEMFIBROZIL [Concomitant]
     Indication: GASTROOESOPHAGEAL REFLUX DISEASE
     Dosage: 20 UKN, QD
     Route: 048
  20. ESCITALOPRAM [Concomitant]
     Indication: DEPRESSION
     Dosage: 10 UKN, QD
     Route: 048
  21. MULTIVITAMINS [Concomitant]
     Dosage: 1 DF, QD
     Route: 048
  22. FIBER [Concomitant]
     Dosage: 2 UKN, TID
     Route: 048

REACTIONS (5)
  - Temperature intolerance [Recovered/Resolved]
  - Muscle spasms [Recovered/Resolved]
  - Rash [Recovered/Resolved]
  - Arthralgia [Recovered/Resolved]
  - Muscular weakness [Recovered/Resolved]
